FAERS Safety Report 6344037-4 (Version None)
Quarter: 2009Q3

REPORT INFORMATION
  Report Type: 
  Country: None (occurrence: None)
  Receive Date: 20090904
  Receipt Date: 20090904
  Transmission Date: 20100115
  Serious: Yes (Other)
  Sender: FDA-Public Use
  Company Number: None

PATIENT
  Sex: Male
  Weight: 136.0791 kg

DRUGS (2)
  1. QUETIAPINE FUMARATE [Suspect]
     Dosage: 200 MG TWICE DAILY PO
     Route: 048
     Dates: start: 20070803, end: 20090513
  2. QUETIAPINE FUMARATE [Suspect]
     Dosage: 300 MG A DAILY PO
     Route: 048
     Dates: start: 20070803, end: 20090513

REACTIONS (2)
  - LEUKOPENIA [None]
  - THROMBOCYTOPENIA [None]
